FAERS Safety Report 13653087 (Version 1)
Quarter: 2017Q2

REPORT INFORMATION
  Report Type: Spontaneous
  Country: US (occurrence: US)
  Receive Date: 20170614
  Receipt Date: 20170614
  Transmission Date: 20170830
  Serious: No
  Sender: FDA-Public Use
  Company Number: US-ROCHE-1239686

PATIENT
  Sex: Male

DRUGS (1)
  1. XELODA [Suspect]
     Active Substance: CAPECITABINE
     Indication: MALIGNANT NEOPLASM OF AMPULLA OF VATER
     Route: 065
     Dates: start: 20130531

REACTIONS (4)
  - Chapped lips [Unknown]
  - Pruritus [Unknown]
  - Rash macular [Unknown]
  - Diarrhoea [Unknown]
